FAERS Safety Report 12280402 (Version 1)
Quarter: 2016Q2

REPORT INFORMATION
  Report Type: Spontaneous
  Country: US (occurrence: US)
  Receive Date: 20160419
  Receipt Date: 20160419
  Transmission Date: 20160815
  Serious: Yes (Hospitalization)
  Sender: FDA-Public Use
  Company Number: US-BEH-2016061284

PATIENT
  Sex: Female
  Weight: 101 kg

DRUGS (30)
  1. PREDNISONE. [Concomitant]
     Active Substance: PREDNISONE
  2. SYNTHROID [Concomitant]
     Active Substance: LEVOTHYROXINE SODIUM
  3. DIGOXIN. [Concomitant]
     Active Substance: DIGOXIN
  4. HIZENTRA [Suspect]
     Active Substance: HUMAN IMMUNOGLOBULIN G
     Route: 058
     Dates: start: 20100610
  5. LIDOCAINE. [Concomitant]
     Active Substance: LIDOCAINE
  6. LANTUS [Concomitant]
     Active Substance: INSULIN GLARGINE
  7. CYCLOBENZAPRINE [Concomitant]
     Active Substance: CYCLOBENZAPRINE
  8. METOPROLOL SUCC ER [Concomitant]
     Active Substance: METOPROLOL SUCCINATE
  9. ALBUTEROL. [Concomitant]
     Active Substance: ALBUTEROL
  10. DIPHENHYDRAMINE. [Concomitant]
     Active Substance: DIPHENHYDRAMINE
  11. ENALAPRIL [Concomitant]
     Active Substance: ENALAPRIL
  12. ASTEPRO [Concomitant]
     Active Substance: AZELASTINE HYDROCHLORIDE
  13. HIZENTRA [Suspect]
     Active Substance: HUMAN IMMUNOGLOBULIN G
     Indication: IMMUNODEFICIENCY
     Route: 058
     Dates: start: 20100610
  14. ALDACTONE [Concomitant]
     Active Substance: SPIRONOLACTONE
  15. NEXIUM [Concomitant]
     Active Substance: ESOMEPRAZOLE MAGNESIUM
  16. ZYRTEC [Concomitant]
     Active Substance: CETIRIZINE HYDROCHLORIDE
  17. EPIPEN [Concomitant]
     Active Substance: EPINEPHRINE
  18. SYMBICORT [Concomitant]
     Active Substance: BUDESONIDE\FORMOTEROL FUMARATE DIHYDRATE
  19. ACETAMINOPHEN. [Concomitant]
     Active Substance: ACETAMINOPHEN
  20. NOVOLOG [Concomitant]
     Active Substance: INSULIN ASPART
  21. OXYCONTIN [Concomitant]
     Active Substance: OXYCODONE HYDROCHLORIDE
  22. FORTEO [Concomitant]
     Active Substance: TERIPARATIDE
  23. ZANTAC [Concomitant]
     Active Substance: RANITIDINE HYDROCHLORIDE
  24. CIPRO [Concomitant]
     Active Substance: CIPROFLOXACIN HYDROCHLORIDE
  25. LASIX [Concomitant]
     Active Substance: FUROSEMIDE
  26. ZYFLO [Concomitant]
     Active Substance: ZILEUTON
  27. POTASSIUM [Concomitant]
     Active Substance: POTASSIUM
  28. FLONASE [Concomitant]
     Active Substance: FLUTICASONE PROPIONATE
  29. THEO-DUR [Concomitant]
     Active Substance: THEOPHYLLINE ANHYDROUS
  30. REGLAN [Concomitant]
     Active Substance: METOCLOPRAMIDE HYDROCHLORIDE

REACTIONS (1)
  - Intestinal perforation [Unknown]
